FAERS Safety Report 10682237 (Version 3)
Quarter: 2015Q1

REPORT INFORMATION
  Report Type: Spontaneous
  Country: AT (occurrence: None)
  Receive Date: 20141224
  Receipt Date: 20150316
  Transmission Date: 20150720
  Serious: Yes (Hospitalization, Other)
  Sender: FDA-Public Use
  Company Number: 2014-21003

PATIENT
  Age: 89 Year
  Sex: Female

DRUGS (1)
  1. EYLEA [Suspect]
     Active Substance: AFLIBERCEPT
     Indication: PRODUCT USED FOR UNKNOWN INDICATION
     Dosage: THE PATIENT RECEIVED 2 EYLEA INJECTIONS
     Dates: start: 20141202, end: 20141202

REACTIONS (5)
  - Visual acuity reduced [None]
  - Vitreous haemorrhage [None]
  - Blindness unilateral [None]
  - Vitreous opacities [None]
  - Visual impairment [None]
